FAERS Safety Report 11731678 (Version 31)
Quarter: 2025Q4

REPORT INFORMATION
  Report Type: Spontaneous
  Country: EU (occurrence: EU)
  Receive Date: 20151112
  Receipt Date: 20251105
  Transmission Date: 20260118
  Serious: Yes (Death, Hospitalization, Other)
  Sender: PFIZER
  Company Number: EU-PFIZER INC-2015378204

PATIENT
  Age: 71 Year
  Sex: Male

DRUGS (400)
  1. ALTACE [Suspect]
     Active Substance: RAMIPRIL
     Dosage: 5 MG,QD
     Route: 048
  2. ALTACE [Suspect]
     Active Substance: RAMIPRIL
     Dosage: 5 MG,QD
     Route: 048
  3. ALTACE [Suspect]
     Active Substance: RAMIPRIL
     Dosage: 5 MG,QD
     Route: 048
  4. ALTACE [Suspect]
     Active Substance: RAMIPRIL
     Dosage: 10 MG
     Route: 048
  5. ALTACE [Suspect]
     Active Substance: RAMIPRIL
     Dosage: 5 MG,QD
     Route: 048
  6. ALTACE [Suspect]
     Active Substance: RAMIPRIL
     Dosage: 5 MG,QD
     Route: 048
  7. ALTACE [Suspect]
     Active Substance: RAMIPRIL
     Dosage: 5 MG,QD
     Route: 048
  8. ALTACE [Suspect]
     Active Substance: RAMIPRIL
     Dosage: 10 MG
     Route: 048
  9. ASPIRIN [Suspect]
     Active Substance: ASPIRIN
     Dosage: 250 MG, QD
     Route: 048
  10. ASPIRIN [Suspect]
     Active Substance: ASPIRIN
     Dosage: 20 MG QD
     Route: 048
  11. ASPIRIN [Suspect]
     Active Substance: ASPIRIN
     Dosage: 250 MG, QD
     Route: 048
  12. ASPIRIN [Suspect]
     Active Substance: ASPIRIN
     Dosage: 20 MG QD
     Route: 048
  13. ASPIRIN [Suspect]
     Active Substance: ASPIRIN
     Dosage: 200 MG, QD
     Route: 048
  14. ASPIRIN [Suspect]
     Active Substance: ASPIRIN
     Dosage: 250 MG, QD
     Route: 048
  15. ASPIRIN [Suspect]
     Active Substance: ASPIRIN
     Dosage: 20 MG QD
     Route: 048
  16. ASPIRIN [Suspect]
     Active Substance: ASPIRIN
     Dosage: 200 MG, QD
     Route: 048
  17. ASPIRIN [Suspect]
     Active Substance: ASPIRIN
     Dosage: } 100MG
     Route: 048
  18. ASPIRIN [Suspect]
     Active Substance: ASPIRIN
     Dosage: } 100MG
     Route: 048
  19. ASPIRIN [Suspect]
     Active Substance: ASPIRIN
     Dosage: } 100MG
     Route: 048
  20. ASPIRIN [Suspect]
     Active Substance: ASPIRIN
     Dosage: } 100MG
     Route: 048
  21. ASPIRIN [Suspect]
     Active Substance: ASPIRIN
     Dosage: 20 MG QD
     Route: 048
  22. ASPIRIN [Suspect]
     Active Substance: ASPIRIN
     Dosage: 20 MG QD
     Route: 048
  23. ASPIRIN [Suspect]
     Active Substance: ASPIRIN
     Dosage: } 100MG
     Route: 048
  24. ASPIRIN [Suspect]
     Active Substance: ASPIRIN
     Dosage: 20 MG QD
     Route: 048
  25. ASPIRIN [Suspect]
     Active Substance: ASPIRIN
     Dosage: 250 MG, QD
     Route: 048
  26. ASPIRIN [Suspect]
     Active Substance: ASPIRIN
     Dosage: 250 MG, QD
     Route: 048
  27. ASPIRIN [Suspect]
     Active Substance: ASPIRIN
     Dosage: 250 MG, QD
     Route: 048
  28. ASPIRIN [Suspect]
     Active Substance: ASPIRIN
     Dosage: 200 MG, QD
     Route: 048
  29. ASPIRIN [Suspect]
     Active Substance: ASPIRIN
     Dosage: 20 MG QD
     Route: 048
  30. ASPIRIN [Suspect]
     Active Substance: ASPIRIN
     Dosage: 20 MG QD
     Route: 048
  31. ASPIRIN [Suspect]
     Active Substance: ASPIRIN
     Dosage: 20 MG QD
     Route: 048
  32. ASPIRIN [Suspect]
     Active Substance: ASPIRIN
     Dosage: 250 MG, QD
     Route: 048
  33. ASPIRIN [Suspect]
     Active Substance: ASPIRIN
     Dosage: 250 MG, QD
     Route: 048
  34. ASPIRIN [Suspect]
     Active Substance: ASPIRIN
     Dosage: } 100MG
     Route: 048
  35. CELEBREX [Suspect]
     Active Substance: CELECOXIB
     Dosage: UNK
  36. CELEBREX [Suspect]
     Active Substance: CELECOXIB
     Dosage: UNK
  37. CELEBREX [Suspect]
     Active Substance: CELECOXIB
     Dosage: UNK
  38. CELEBREX [Suspect]
     Active Substance: CELECOXIB
     Dosage: UNK
  39. CELEBREX [Suspect]
     Active Substance: CELECOXIB
     Dosage: UNK
  40. CELEBREX [Suspect]
     Active Substance: CELECOXIB
     Dosage: UNK
  41. CELEBREX [Suspect]
     Active Substance: CELECOXIB
     Dosage: UNK
  42. CELEBREX [Suspect]
     Active Substance: CELECOXIB
     Dosage: UNK
  43. CELEBREX [Suspect]
     Active Substance: CELECOXIB
     Dosage: UNK
  44. CELEBREX [Suspect]
     Active Substance: CELECOXIB
     Dosage: UNK
  45. ESOMEPRAZOLE MAGNESIUM [Suspect]
     Active Substance: ESOMEPRAZOLE MAGNESIUM
     Dosage: 20 MG, QD
     Route: 048
  46. ESOMEPRAZOLE MAGNESIUM [Suspect]
     Active Substance: ESOMEPRAZOLE MAGNESIUM
     Dosage: 20 MG, QD
     Route: 048
  47. ESOMEPRAZOLE MAGNESIUM [Suspect]
     Active Substance: ESOMEPRAZOLE MAGNESIUM
     Dosage: 20 MG, QD
     Route: 048
  48. ESOMEPRAZOLE MAGNESIUM [Suspect]
     Active Substance: ESOMEPRAZOLE MAGNESIUM
     Dosage: 20 MG, QD
     Route: 048
  49. ESOMEPRAZOLE MAGNESIUM [Suspect]
     Active Substance: ESOMEPRAZOLE MAGNESIUM
     Dosage: 20 MG, QD
     Route: 048
  50. ACETAMINOPHEN [Suspect]
     Active Substance: ACETAMINOPHEN
     Dosage: 100 MG, Q12H
     Route: 048
  51. ACETAMINOPHEN [Suspect]
     Active Substance: ACETAMINOPHEN
     Dosage: 1000 MG, Q12H (1000 MG, 2X/DAY (ONCE EVERY 12HOURS))
     Route: 048
  52. ACETAMINOPHEN [Suspect]
     Active Substance: ACETAMINOPHEN
     Dosage: 400 MG (200 MG, BID)
     Route: 048
  53. ACETAMINOPHEN [Suspect]
     Active Substance: ACETAMINOPHEN
     Dosage: 4000 MG
  54. ACETAMINOPHEN [Suspect]
     Active Substance: ACETAMINOPHEN
     Dosage: 100 MG, Q12H
     Route: 048
  55. ACETAMINOPHEN [Suspect]
     Active Substance: ACETAMINOPHEN
     Dosage: 200 MG, Q12H
     Route: 048
  56. ACETAMINOPHEN [Suspect]
     Active Substance: ACETAMINOPHEN
     Dosage: 1000 MG, Q12H (1000 MG, 2X/DAY (ONCE EVERY 12HOURS))
     Route: 048
  57. ACETAMINOPHEN [Suspect]
     Active Substance: ACETAMINOPHEN
     Dosage: 2000 MG, QD (TABLET)
     Route: 048
  58. ACETAMINOPHEN [Suspect]
     Active Substance: ACETAMINOPHEN
     Dosage: 200 MG, QD
     Route: 048
  59. ACETAMINOPHEN [Suspect]
     Active Substance: ACETAMINOPHEN
     Dosage: 100 MG EVERY 12 HOURS (BID)
  60. ACETAMINOPHEN [Suspect]
     Active Substance: ACETAMINOPHEN
     Dosage: 200 MG, 2X/DAY (Q12H)
     Route: 048
  61. ACETAMINOPHEN [Suspect]
     Active Substance: ACETAMINOPHEN
     Dosage: 100 MG, 2X/DAY
     Route: 048
  62. ACETAMINOPHEN [Suspect]
     Active Substance: ACETAMINOPHEN
     Dosage: 1 DOSAGE FORM, Q12H (1000 MG, 2X/DAY (ONCE EVERY 12HOURS)
  63. ACETAMINOPHEN [Suspect]
     Active Substance: ACETAMINOPHEN
     Dosage: 1 DOSAGE FORM, Q12H (1000 MG, 2X/DAY (ONCE EVERY 12HOURS)
  64. ACETAMINOPHEN [Suspect]
     Active Substance: ACETAMINOPHEN
     Dosage: 400 MG (200 MG, BID)
     Route: 048
  65. ACETAMINOPHEN [Suspect]
     Active Substance: ACETAMINOPHEN
     Dosage: 200 MG, BID
     Route: 048
  66. ACETAMINOPHEN [Suspect]
     Active Substance: ACETAMINOPHEN
     Dosage: 2000 MG, 2X/DAY (BID)
     Route: 048
  67. ACETAMINOPHEN [Suspect]
     Active Substance: ACETAMINOPHEN
     Dosage: 200 MG, BID
     Route: 048
  68. ACETAMINOPHEN [Suspect]
     Active Substance: ACETAMINOPHEN
     Dosage: 100 MG, Q12H
     Route: 048
  69. ACETAMINOPHEN [Suspect]
     Active Substance: ACETAMINOPHEN
     Dosage: 100 MG, Q12H
     Route: 048
  70. ACETAMINOPHEN [Suspect]
     Active Substance: ACETAMINOPHEN
     Dosage: 400 MG (200 MG, BID)
     Route: 048
  71. ACETAMINOPHEN [Suspect]
     Active Substance: ACETAMINOPHEN
     Dosage: 1 DF,Q12H (1000 MG, 2X/DAY ONCE EVERY 12HOURS)
  72. ACETAMINOPHEN [Suspect]
     Active Substance: ACETAMINOPHEN
     Dosage: 1000 MG, Q12H (1000 MG, 2X/DAY (ONCE EVERY 12HOURS))
     Route: 048
  73. ACETAMINOPHEN [Suspect]
     Active Substance: ACETAMINOPHEN
     Dosage: 100 MG, Q12H
     Route: 048
  74. OMEPRAZOLE [Suspect]
     Active Substance: OMEPRAZOLE
     Dosage: 20 MG, QD
     Route: 048
  75. OMEPRAZOLE [Suspect]
     Active Substance: OMEPRAZOLE
     Dosage: 20 MG, QD
     Route: 048
  76. ASPIRIN LYSINE [Suspect]
     Active Substance: ASPIRIN LYSINE
     Dosage: 20 MG,QD
     Route: 048
  77. ASPIRIN LYSINE [Suspect]
     Active Substance: ASPIRIN LYSINE
     Dosage: 250 MG, QD
     Route: 048
  78. ASPIRIN LYSINE [Suspect]
     Active Substance: ASPIRIN LYSINE
     Dosage: 250 MG, QD
     Route: 048
  79. ASPIRIN LYSINE [Suspect]
     Active Substance: ASPIRIN LYSINE
     Dosage: 20 MG,QD
     Route: 048
  80. ASPIRIN LYSINE [Suspect]
     Active Substance: ASPIRIN LYSINE
     Dosage: 20 MG,QD
     Route: 048
  81. ASPIRIN LYSINE [Suspect]
     Active Substance: ASPIRIN LYSINE
     Dosage: 250 MG, QD
     Route: 048
  82. ASPIRIN LYSINE [Suspect]
     Active Substance: ASPIRIN LYSINE
     Dosage: 20 MG,QD
     Route: 048
  83. ASPIRIN LYSINE [Suspect]
     Active Substance: ASPIRIN LYSINE
     Dosage: 250 MG, QD
     Route: 048
  84. CLOBAZAM [Suspect]
     Active Substance: CLOBAZAM
     Dosage: 10 MG, TID,10 MG, 3X/DAY (ONCE EVERY 8HOURS)
  85. CLOBAZAM [Suspect]
     Active Substance: CLOBAZAM
     Dosage: 90 MG, QD
     Route: 048
  86. CLOBAZAM [Suspect]
     Active Substance: CLOBAZAM
     Dosage: 20 MG, QD
     Route: 048
  87. CLOBAZAM [Suspect]
     Active Substance: CLOBAZAM
     Dosage: 4 MG, QD
     Route: 048
  88. CLOBAZAM [Suspect]
     Active Substance: CLOBAZAM
     Dosage: 30 MG, QD
     Route: 048
  89. CLOBAZAM [Suspect]
     Active Substance: CLOBAZAM
     Dosage: 30 MG, QD
     Route: 048
  90. CLOBAZAM [Suspect]
     Active Substance: CLOBAZAM
     Dosage: 20 MG, QD
     Route: 048
  91. CLOBAZAM [Suspect]
     Active Substance: CLOBAZAM
     Dosage: 4 MG, QD
     Route: 048
  92. CLOBAZAM [Suspect]
     Active Substance: CLOBAZAM
     Dosage: 90 MILLIGRAM, QD
     Route: 048
  93. CLOBAZAM [Suspect]
     Active Substance: CLOBAZAM
     Dosage: 30 MG, QD
     Route: 048
  94. CLOBAZAM [Suspect]
     Active Substance: CLOBAZAM
     Dosage: 10 MG, TID,10 MG, 3X/DAY (ONCE EVERY 8HOURS)
     Route: 048
  95. CLOBAZAM [Suspect]
     Active Substance: CLOBAZAM
     Dosage: 90 MG, QD
     Route: 048
  96. CLOBAZAM [Suspect]
     Active Substance: CLOBAZAM
     Dosage: 8 HOURS, TID
     Route: 048
  97. CLOBAZAM [Suspect]
     Active Substance: CLOBAZAM
     Dosage: 8 HOURS, TID
     Route: 048
  98. CLOBAZAM [Suspect]
     Active Substance: CLOBAZAM
     Dosage: UNK, 1X/DAY
     Route: 048
  99. CLOBAZAM [Suspect]
     Active Substance: CLOBAZAM
     Dosage: 4 MG, 1X/DAY
     Route: 048
  100. CLOBAZAM [Suspect]
     Active Substance: CLOBAZAM
     Dosage: 30 MG, 1X/DAY
     Route: 048
  101. CLOBAZAM [Suspect]
     Active Substance: CLOBAZAM
     Dosage: 10 MG, TID,10 MG, 3X/DAY (ONCE EVERY 8HOURS)
     Route: 048
  102. CLOBAZAM [Suspect]
     Active Substance: CLOBAZAM
     Dosage: UNK, 1X/DAY
     Route: 048
  103. CLOBAZAM [Suspect]
     Active Substance: CLOBAZAM
     Dosage: UNK, 1X/DAY
     Route: 048
  104. CLOBAZAM [Suspect]
     Active Substance: CLOBAZAM
     Dosage: 8 HOURS, TID
     Route: 048
  105. CLOBAZAM [Suspect]
     Active Substance: CLOBAZAM
     Dosage: 8 HOURS, TID
     Route: 048
  106. CLOBAZAM [Suspect]
     Active Substance: CLOBAZAM
     Dosage: UNK, 1X/DAY
     Route: 048
  107. CLOBAZAM [Suspect]
     Active Substance: CLOBAZAM
     Dosage: UNK, 1X/DAY
     Route: 048
  108. CLOBAZAM [Suspect]
     Active Substance: CLOBAZAM
     Dosage: 8 HOURS, TID
     Route: 048
  109. CLOBAZAM [Suspect]
     Active Substance: CLOBAZAM
     Dosage: 8 HOURS, TID
     Route: 048
  110. CLOBAZAM [Suspect]
     Active Substance: CLOBAZAM
     Dosage: UNK, 3X/DAY
     Route: 048
  111. CLOBAZAM [Suspect]
     Active Substance: CLOBAZAM
     Dosage: 20 MG, QD
     Route: 048
  112. RIVOTRIL [Suspect]
     Active Substance: CLONAZEPAM
     Dosage: 4 MG,QD
     Route: 048
  113. RIVOTRIL [Suspect]
     Active Substance: CLONAZEPAM
     Dosage: UNK
     Route: 048
  114. RIVOTRIL [Suspect]
     Active Substance: CLONAZEPAM
     Dosage: 4 MG,QD
     Route: 048
  115. DIACEREIN [Suspect]
     Active Substance: DIACEREIN
     Dosage: 50 MG, BID
     Route: 048
  116. DIACEREIN [Suspect]
     Active Substance: DIACEREIN
     Dosage: 100 MG, BID
     Route: 048
  117. DIACEREIN [Suspect]
     Active Substance: DIACEREIN
     Dosage: 100 MG, BID
     Route: 048
  118. DIACEREIN [Suspect]
     Active Substance: DIACEREIN
     Dosage: 200MG QD
     Route: 048
  119. DIACEREIN [Suspect]
     Active Substance: DIACEREIN
     Dosage: 50 MG, BID
     Route: 048
  120. DIACEREIN [Suspect]
     Active Substance: DIACEREIN
     Dosage: 200MG QD
     Route: 048
  121. DIACEREIN [Suspect]
     Active Substance: DIACEREIN
     Dosage: 100 MG, BID
     Route: 048
  122. DIACEREIN [Suspect]
     Active Substance: DIACEREIN
     Dosage: 100 MG, BID
     Route: 048
  123. DIACEREIN [Suspect]
     Active Substance: DIACEREIN
     Dosage: 100 MG, BID
     Route: 048
  124. DIACEREIN [Suspect]
     Active Substance: DIACEREIN
     Dosage: 50 MG, BID
     Route: 048
  125. DIACEREIN [Suspect]
     Active Substance: DIACEREIN
     Dosage: 100 MG, BID
     Route: 048
  126. DIACEREIN [Suspect]
     Active Substance: DIACEREIN
     Dosage: 50 MG, BID
     Route: 048
  127. DIACEREIN [Suspect]
     Active Substance: DIACEREIN
     Dosage: 100 MG, BID
     Route: 048
  128. DIACEREIN [Suspect]
     Active Substance: DIACEREIN
     Dosage: 200MG QD
     Route: 048
  129. DIACEREIN [Suspect]
     Active Substance: DIACEREIN
     Dosage: 200MG QD
     Route: 048
  130. LASIX [Suspect]
     Active Substance: FUROSEMIDE
     Dosage: 40 MG,QD
     Route: 048
  131. LASIX [Suspect]
     Active Substance: FUROSEMIDE
     Dosage: 40 MG,QD
     Route: 048
  132. LASIX [Suspect]
     Active Substance: FUROSEMIDE
     Dosage: 40 MG,QD
     Route: 048
  133. LASIX [Suspect]
     Active Substance: FUROSEMIDE
     Dosage: 40 MG,QD
     Route: 048
  134. LASIX [Suspect]
     Active Substance: FUROSEMIDE
     Dosage: 40 MG,QD
     Route: 048
  135. NITROGLYCERIN [Suspect]
     Active Substance: NITROGLYCERIN
     Dosage: 10 MG,QD
     Route: 062
  136. NITROGLYCERIN [Suspect]
     Active Substance: NITROGLYCERIN
     Dosage: 10 MG, DAILY
     Route: 062
  137. NITROGLYCERIN [Suspect]
     Active Substance: NITROGLYCERIN
     Dosage: UNK
     Route: 062
  138. NITROGLYCERIN [Suspect]
     Active Substance: NITROGLYCERIN
     Dosage: UNK
     Route: 062
  139. NITROGLYCERIN [Suspect]
     Active Substance: NITROGLYCERIN
     Dosage: UNK
     Route: 062
  140. NITROGLYCERIN [Suspect]
     Active Substance: NITROGLYCERIN
     Dosage: 10 MG, DAILY
     Route: 062
  141. NITROGLYCERIN [Suspect]
     Active Substance: NITROGLYCERIN
     Dosage: UNK
     Route: 062
  142. NITROGLYCERIN [Suspect]
     Active Substance: NITROGLYCERIN
     Dosage: 10 MG, DAILY
     Route: 062
  143. POLYETHYLENE GLYCOL 3350 [Suspect]
     Active Substance: POLYETHYLENE GLYCOL 3350
     Dosage: 2 DF,QD
     Route: 048
  144. MIANSERIN HYDROCHLORIDE [Suspect]
     Active Substance: MIANSERIN HYDROCHLORIDE
     Dosage: 60MG QD
     Route: 048
  145. MIANSERIN HYDROCHLORIDE [Suspect]
     Active Substance: MIANSERIN HYDROCHLORIDE
     Dosage: 60MG QD
     Route: 048
  146. MIANSERIN HYDROCHLORIDE [Suspect]
     Active Substance: MIANSERIN HYDROCHLORIDE
     Dosage: 60MG QD
     Route: 048
  147. MIANSERIN HYDROCHLORIDE [Suspect]
     Active Substance: MIANSERIN HYDROCHLORIDE
     Dosage: 60MG QD
     Route: 048
  148. MIANSERIN HYDROCHLORIDE [Suspect]
     Active Substance: MIANSERIN HYDROCHLORIDE
     Dosage: 60MG QD
     Route: 048
  149. MIANSERIN HYDROCHLORIDE [Suspect]
     Active Substance: MIANSERIN HYDROCHLORIDE
     Dosage: 60MG QD
     Route: 048
  150. OMEPRAZOLE [Suspect]
     Active Substance: OMEPRAZOLE
     Dosage: 20 MG, DAILY
     Route: 048
  151. OMEPRAZOLE [Suspect]
     Active Substance: OMEPRAZOLE
     Dosage: 20 MG,QD
     Route: 048
  152. PIPAMPERONE [Suspect]
     Active Substance: PIPAMPERONE
     Dosage: 20 MG,QD
     Route: 048
  153. PIPAMPERONE [Suspect]
     Active Substance: PIPAMPERONE
     Dosage: 20 MG,QD
     Route: 048
  154. PIPAMPERONE [Suspect]
     Active Substance: PIPAMPERONE
     Dosage: 20 MG,QD
     Route: 048
  155. PIPAMPERONE [Suspect]
     Active Substance: PIPAMPERONE
     Dosage: 20 MG,QD
     Route: 048
  156. PROPRANOLOL HYDROCHLORIDE [Suspect]
     Active Substance: PROPRANOLOL HYDROCHLORIDE
     Dosage: 20 MG,QD
     Route: 048
  157. PROPRANOLOL HYDROCHLORIDE [Suspect]
     Active Substance: PROPRANOLOL HYDROCHLORIDE
     Dosage: 200 MG, QD (100 MILLIGRAM, BID)
     Route: 048
  158. PROPRANOLOL HYDROCHLORIDE [Suspect]
     Active Substance: PROPRANOLOL HYDROCHLORIDE
     Dosage: 20 MG,QD
     Route: 048
  159. PROPRANOLOL HYDROCHLORIDE [Suspect]
     Active Substance: PROPRANOLOL HYDROCHLORIDE
     Dosage: FREQUENCY TIME :12 FREQUENCY
     Route: 048
  160. PROPRANOLOL HYDROCHLORIDE [Suspect]
     Active Substance: PROPRANOLOL HYDROCHLORIDE
     Dosage: 20 MG,QD
     Route: 048
  161. ALBUTEROL SULFATE [Suspect]
     Active Substance: ALBUTEROL SULFATE
     Dosage: 2 DF, QD
     Route: 045
  162. ALBUTEROL SULFATE [Suspect]
     Active Substance: ALBUTEROL SULFATE
     Dosage: UNK
     Route: 045
  163. ALBUTEROL SULFATE [Suspect]
     Active Substance: ALBUTEROL SULFATE
     Dosage: 2DF QD
  164. ALBUTEROL SULFATE [Suspect]
     Active Substance: ALBUTEROL SULFATE
     Dosage: 2DF QD
     Route: 045
  165. ALBUTEROL SULFATE [Suspect]
     Active Substance: ALBUTEROL SULFATE
     Dosage: 1 DF, BID
     Route: 045
  166. ALBUTEROL SULFATE [Suspect]
     Active Substance: ALBUTEROL SULFATE
     Dosage: UNK
     Route: 045
  167. ALBUTEROL SULFATE [Suspect]
     Active Substance: ALBUTEROL SULFATE
     Dosage: UNK
     Route: 045
  168. ALBUTEROL SULFATE [Suspect]
     Active Substance: ALBUTEROL SULFATE
     Dosage: 1 DF, BID
     Route: 045
  169. ALBUTEROL SULFATE [Suspect]
     Active Substance: ALBUTEROL SULFATE
     Dosage: 2DF QD
     Route: 045
  170. ALBUTEROL SULFATE [Suspect]
     Active Substance: ALBUTEROL SULFATE
     Dosage: 2DF QD
     Route: 045
  171. ALBUTEROL SULFATE [Suspect]
     Active Substance: ALBUTEROL SULFATE
     Dosage: 2DF QD
     Route: 045
  172. ALBUTEROL SULFATE [Suspect]
     Active Substance: ALBUTEROL SULFATE
     Dosage: 2DF QD
     Route: 045
  173. ALBUTEROL SULFATE [Suspect]
     Active Substance: ALBUTEROL SULFATE
     Dosage: 2DF QD
     Route: 045
  174. ALBUTEROL SULFATE [Suspect]
     Active Substance: ALBUTEROL SULFATE
     Dosage: 2DF QD
     Route: 045
  175. ALBUTEROL SULFATE [Suspect]
     Active Substance: ALBUTEROL SULFATE
     Dosage: 2DF QD
     Route: 045
  176. ALBUTEROL SULFATE [Suspect]
     Active Substance: ALBUTEROL SULFATE
     Dosage: 1 DF, BID
     Route: 045
  177. ALBUTEROL SULFATE [Suspect]
     Active Substance: ALBUTEROL SULFATE
     Dosage: 1 DF, BID
     Route: 045
  178. ALBUTEROL SULFATE [Suspect]
     Active Substance: ALBUTEROL SULFATE
     Dosage: UNK
     Route: 045
  179. ALBUTEROL SULFATE [Suspect]
     Active Substance: ALBUTEROL SULFATE
     Dosage: 1 DF, BID
     Route: 045
  180. ALBUTEROL SULFATE [Suspect]
     Active Substance: ALBUTEROL SULFATE
     Dosage: 2DF QD
     Route: 045
  181. ALBUTEROL SULFATE [Suspect]
     Active Substance: ALBUTEROL SULFATE
     Dosage: 2DF QD
     Route: 045
  182. ALBUTEROL SULFATE [Suspect]
     Active Substance: ALBUTEROL SULFATE
     Dosage: 2DF QD
     Route: 045
  183. ALBUTEROL SULFATE [Suspect]
     Active Substance: ALBUTEROL SULFATE
     Dosage: 1 DF, BID
     Route: 045
  184. ALBUTEROL SULFATE [Suspect]
     Active Substance: ALBUTEROL SULFATE
     Dosage: UNK
     Route: 045
  185. ALBUTEROL SULFATE [Suspect]
     Active Substance: ALBUTEROL SULFATE
     Dosage: 2DF QD
     Route: 045
  186. SEREVENT DISKUS [Suspect]
     Active Substance: SALMETEROL XINAFOATE
     Dosage: 1 DF,BID (1 PUFF) (ONCE EVERY 12HOURS)
     Route: 045
  187. SEREVENT DISKUS [Suspect]
     Active Substance: SALMETEROL XINAFOATE
     Dosage: 2 DF, BID
     Route: 065
  188. SEREVENT DISKUS [Suspect]
     Active Substance: SALMETEROL XINAFOATE
     Dosage: 4 DF, QD
     Route: 045
  189. SEREVENT DISKUS [Suspect]
     Active Substance: SALMETEROL XINAFOATE
     Dosage: 4 DF, QD (2F, BID)
     Route: 045
  190. SEREVENT DISKUS [Suspect]
     Active Substance: SALMETEROL XINAFOATE
     Dosage: 4 DF, QD 1 DF,BID (1 PUFF) (ONCE EVERY 12HOURS)
     Route: 045
  191. SEREVENT DISKUS [Suspect]
     Active Substance: SALMETEROL XINAFOATE
     Dosage: 2 DF, Q12H
     Route: 045
  192. SEREVENT DISKUS [Suspect]
     Active Substance: SALMETEROL XINAFOATE
     Dosage: 1 DF,BID (1 PUFF) (ONCE EVERY 12HOURS)
     Route: 045
  193. SEREVENT DISKUS [Suspect]
     Active Substance: SALMETEROL XINAFOATE
     Dosage: 2 DF, Q12H
     Route: 045
  194. ZOCOR [Suspect]
     Active Substance: SIMVASTATIN
     Dosage: 20 MG,QD
     Route: 048
  195. ZOCOR [Suspect]
     Active Substance: SIMVASTATIN
     Dosage: 20 MG,QD
     Route: 048
  196. ZOCOR [Suspect]
     Active Substance: SIMVASTATIN
     Dosage: 20 MG,QD
     Route: 048
  197. TREMIN [Suspect]
     Active Substance: TRIHEXYPHENIDYL HYDROCHLORIDE
     Dosage: 1 DF, 1X/DAY
     Route: 048
  198. TREMIN [Suspect]
     Active Substance: TRIHEXYPHENIDYL HYDROCHLORIDE
     Dosage: 1 MG, QD
     Route: 048
  199. TREMIN [Suspect]
     Active Substance: TRIHEXYPHENIDYL HYDROCHLORIDE
     Dosage: 1 MG, QD
     Route: 048
  200. TREMIN [Suspect]
     Active Substance: TRIHEXYPHENIDYL HYDROCHLORIDE
     Dosage: 1 DF, 1X/DAY
     Route: 048
  201. TREMIN [Suspect]
     Active Substance: TRIHEXYPHENIDYL HYDROCHLORIDE
     Dosage: 1 DF, 1X/DAY
     Route: 048
  202. TREMIN [Suspect]
     Active Substance: TRIHEXYPHENIDYL HYDROCHLORIDE
     Dosage: 1 MG, QD
     Route: 048
  203. ISOPTIN [Suspect]
     Active Substance: VERAPAMIL HYDROCHLORIDE
     Dosage: 240 MG,QD
     Route: 048
  204. ISOPTIN [Suspect]
     Active Substance: VERAPAMIL HYDROCHLORIDE
     Dosage: 240 MG,QD
     Route: 048
  205. ISOPTIN [Suspect]
     Active Substance: VERAPAMIL HYDROCHLORIDE
     Dosage: 240 MG,QD
     Route: 048
  206. ZOPICLONE [Suspect]
     Active Substance: ZOPICLONE
     Dosage: 15 MG,QD
     Route: 048
  207. ZOPICLONE [Suspect]
     Active Substance: ZOPICLONE
     Dosage: 15 MG,QD
     Route: 048
  208. ZOPICLONE [Suspect]
     Active Substance: ZOPICLONE
     Dosage: 15 MG,QD
     Route: 048
  209. ZOPICLONE [Suspect]
     Active Substance: ZOPICLONE
     Dosage: 15 MG,QD
     Route: 048
  210. CLONAZEPAM [Suspect]
     Active Substance: CLONAZEPAM
     Dosage: 30 MG, QD
  211. CLONAZEPAM [Suspect]
     Active Substance: CLONAZEPAM
     Dosage: 30 MG, QD
  212. CLONAZEPAM [Suspect]
     Active Substance: CLONAZEPAM
     Dosage: 4 MILLIGRAM, QD
     Route: 048
  213. CLONAZEPAM [Suspect]
     Active Substance: CLONAZEPAM
     Dosage: 30 MG, QD
  214. CLONAZEPAM [Suspect]
     Active Substance: CLONAZEPAM
     Dosage: 30 MG, QD
  215. CLONAZEPAM [Suspect]
     Active Substance: CLONAZEPAM
     Dosage: 30 MG, QD
  216. CLONAZEPAM [Suspect]
     Active Substance: CLONAZEPAM
     Dosage: 30 MG, QD
  217. CLONAZEPAM [Suspect]
     Active Substance: CLONAZEPAM
     Dosage: 4 MILLIGRAM, QD
     Route: 048
  218. ACETAMINOPHEN [Suspect]
     Active Substance: ACETAMINOPHEN
     Dosage: 200 MG, QD
     Route: 048
  219. ACETAMINOPHEN [Suspect]
     Active Substance: ACETAMINOPHEN
     Dosage: 100 MG
     Route: 048
  220. ACETAMINOPHEN [Suspect]
     Active Substance: ACETAMINOPHEN
     Dosage: 400 MG, QD
     Route: 048
  221. ACETAMINOPHEN [Suspect]
     Active Substance: ACETAMINOPHEN
     Dosage: 2000 MG, QD
     Route: 048
  222. ACETAMINOPHEN [Suspect]
     Active Substance: ACETAMINOPHEN
     Dosage: 400 MG, QD
     Route: 048
  223. ACETAMINOPHEN [Suspect]
     Active Substance: ACETAMINOPHEN
     Dosage: 200 MG, QD
     Route: 048
  224. ACETAMINOPHEN [Suspect]
     Active Substance: ACETAMINOPHEN
     Dosage: 100 MG
     Route: 048
  225. ACETAMINOPHEN [Suspect]
     Active Substance: ACETAMINOPHEN
     Dosage: 2000 MG, QD
     Route: 048
  226. ACETAMINOPHEN [Suspect]
     Active Substance: ACETAMINOPHEN
     Dosage: 100 MG
     Route: 048
  227. ACETAMINOPHEN [Suspect]
     Active Substance: ACETAMINOPHEN
     Dosage: 200 MG, QD
     Route: 048
  228. ACETAMINOPHEN [Suspect]
     Active Substance: ACETAMINOPHEN
     Dosage: 100 MG
     Route: 048
  229. ACETAMINOPHEN [Suspect]
     Active Substance: ACETAMINOPHEN
     Dosage: 2000 MG, QD
     Route: 048
  230. ACETAMINOPHEN [Suspect]
     Active Substance: ACETAMINOPHEN
     Dosage: 200 MG, QD
     Route: 048
  231. ACETAMINOPHEN [Suspect]
     Active Substance: ACETAMINOPHEN
     Dosage: 200 MG, QD
     Route: 048
  232. ACETAMINOPHEN [Suspect]
     Active Substance: ACETAMINOPHEN
     Dosage: 100 MG
     Route: 048
  233. ACETAMINOPHEN [Suspect]
     Active Substance: ACETAMINOPHEN
     Dosage: 400 MG, QD
     Route: 048
  234. ACETAMINOPHEN [Suspect]
     Active Substance: ACETAMINOPHEN
     Dosage: 1000 MG, 2X/DAY (ONCE EVERY 12 HOURS)
  235. ACETAMINOPHEN [Suspect]
     Active Substance: ACETAMINOPHEN
     Dosage: 200 MG, BID
     Route: 048
  236. ACETAMINOPHEN [Suspect]
     Active Substance: ACETAMINOPHEN
     Dosage: 1000 MG, 2X/DAY (ONCE EVERY 12 HOURS)
  237. ACETAMINOPHEN [Suspect]
     Active Substance: ACETAMINOPHEN
     Dosage: 1000 MG, 2X/DAY (ONCE EVERY 12 HOURS)
  238. ACETAMINOPHEN [Suspect]
     Active Substance: ACETAMINOPHEN
     Dosage: 100 MG
     Route: 048
  239. ASPIRIN LYSINE [Suspect]
     Active Substance: ASPIRIN LYSINE
     Dosage: 20 MG,QD
     Route: 048
  240. RAMIPRIL [Suspect]
     Active Substance: RAMIPRIL
     Dosage: 5 MG, 1X/DAY
     Route: 048
  241. SALMETEROL XINAFOATE [Suspect]
     Active Substance: SALMETEROL XINAFOATE
     Dosage: 1 DF, 2X/DAY ( 1 DF,BID (1 PUFF) (ONCE EVERY 12HOURS)))
     Route: 045
  242. SALMETEROL XINAFOATE [Suspect]
     Active Substance: SALMETEROL XINAFOATE
     Dosage: 4 DF, QD
  243. SALMETEROL XINAFOATE [Suspect]
     Active Substance: SALMETEROL XINAFOATE
     Dosage: 4 DF, QD
  244. SALMETEROL XINAFOATE [Suspect]
     Active Substance: SALMETEROL XINAFOATE
     Dosage: 2 DF, QD (2 DOSAGE FORM, QD)
     Route: 045
  245. VENTOLIN [Suspect]
     Active Substance: ALBUTEROL SULFATE
     Dosage: 1 DF, 1X/DAY
     Route: 065
  246. ASPIRIN LYSINE [Suspect]
     Active Substance: ASPIRIN LYSINE
     Dosage: 250 MG, QD
     Route: 048
  247. ASPIRIN LYSINE [Suspect]
     Active Substance: ASPIRIN LYSINE
     Dosage: 20 MG, QD
     Route: 048
  248. ASPIRIN LYSINE [Suspect]
     Active Substance: ASPIRIN LYSINE
     Dosage: 200 MG, QD
     Route: 065
  249. ASPIRIN LYSINE [Suspect]
     Active Substance: ASPIRIN LYSINE
     Dosage: 250 MG, QD
     Route: 048
  250. ASPIRIN LYSINE [Suspect]
     Active Substance: ASPIRIN LYSINE
     Dosage: 20 MG, QD
     Route: 048
  251. ASPIRIN LYSINE [Suspect]
     Active Substance: ASPIRIN LYSINE
     Dosage: 20 MG, QD
     Route: 048
  252. NITROGLYCERIN [Suspect]
     Active Substance: NITROGLYCERIN
     Dosage: 10 MG, QD
  253. NITROGLYCERIN [Suspect]
     Active Substance: NITROGLYCERIN
     Dosage: UNK
  254. NITROGLYCERIN [Suspect]
     Active Substance: NITROGLYCERIN
     Dosage: UNK
  255. NITROGLYCERIN [Suspect]
     Active Substance: NITROGLYCERIN
     Dosage: 10 MG, QD
  256. NITROGLYCERIN [Suspect]
     Active Substance: NITROGLYCERIN
     Dosage: 10 MG, QD
  257. NITROGLYCERIN [Suspect]
     Active Substance: NITROGLYCERIN
     Dosage: UNK
  258. NITROGLYCERIN [Suspect]
     Active Substance: NITROGLYCERIN
     Dosage: UNK
  259. NITROGLYCERIN [Suspect]
     Active Substance: NITROGLYCERIN
     Dosage: UNK
  260. NITROGLYCERIN [Suspect]
     Active Substance: NITROGLYCERIN
     Dosage: UNK
  261. NITROGLYCERIN [Suspect]
     Active Substance: NITROGLYCERIN
     Dosage: 10 MG, QD
  262. NITROGLYCERIN [Suspect]
     Active Substance: NITROGLYCERIN
     Dosage: UNK
  263. NITROGLYCERIN [Suspect]
     Active Substance: NITROGLYCERIN
     Dosage: 10 MG, QD
  264. NITROGLYCERIN [Suspect]
     Active Substance: NITROGLYCERIN
     Dosage: UNK
  265. NITROGLYCERIN [Suspect]
     Active Substance: NITROGLYCERIN
     Dosage: 10 MG, QD
  266. NITROGLYCERIN [Suspect]
     Active Substance: NITROGLYCERIN
     Dosage: UNK
  267. NITROGLYCERIN [Suspect]
     Active Substance: NITROGLYCERIN
     Dosage: 10 MG, QD
  268. NITROGLYCERIN [Suspect]
     Active Substance: NITROGLYCERIN
     Dosage: UNK
  269. NITROGLYCERIN [Suspect]
     Active Substance: NITROGLYCERIN
     Dosage: 10 MG, QD
  270. NITROGLYCERIN [Suspect]
     Active Substance: NITROGLYCERIN
     Dosage: UNK
  271. NITROGLYCERIN [Suspect]
     Active Substance: NITROGLYCERIN
     Dosage: 10 MG, QD
  272. NITROGLYCERIN [Suspect]
     Active Substance: NITROGLYCERIN
     Dosage: 10 MG, QD
  273. NITROGLYCERIN [Suspect]
     Active Substance: NITROGLYCERIN
     Dosage: 10 MG, QD
  274. NITROGLYCERIN [Suspect]
     Active Substance: NITROGLYCERIN
     Dosage: 10 MG, QD
  275. NITROGLYCERIN [Suspect]
     Active Substance: NITROGLYCERIN
     Dosage: 10 MG, QD
  276. NITROGLYCERIN [Suspect]
     Active Substance: NITROGLYCERIN
     Dosage: UNK
  277. NITROGLYCERIN [Suspect]
     Active Substance: NITROGLYCERIN
     Dosage: UNK
  278. PREDNAZOLINE [Suspect]
     Active Substance: PREDNAZOLINE
     Dosage: 1 DF, 1X/DAY
     Route: 045
  279. PREDNAZOLINE [Suspect]
     Active Substance: PREDNAZOLINE
     Dosage: 1 DF, 1X/DAY
     Route: 045
  280. PREDNAZOLINE [Suspect]
     Active Substance: PREDNAZOLINE
     Dosage: 1 DF, 1X/DAY (PUFF)
     Route: 045
  281. PREDNAZOLINE [Suspect]
     Active Substance: PREDNAZOLINE
     Dosage: 1 DF, 1X/DAY (PUFF)
     Route: 045
  282. PREDNAZOLINE [Suspect]
     Active Substance: PREDNAZOLINE
     Dosage: 1 DF, 1X/DAY
     Route: 045
  283. PREDNAZOLINE [Suspect]
     Active Substance: PREDNAZOLINE
     Dosage: 1 DF, 1X/DAY
     Route: 045
  284. PREDNAZOLINE [Suspect]
     Active Substance: PREDNAZOLINE
     Dosage: 1 DF, 1X/DAY
     Route: 045
  285. PREDNAZOLINE [Suspect]
     Active Substance: PREDNAZOLINE
     Dosage: 1 DF, 1X/DAY
     Route: 045
  286. PREDNAZOLINE [Suspect]
     Active Substance: PREDNAZOLINE
     Dosage: 1 DF, 1X/DAY
     Route: 045
  287. PREDNAZOLINE [Suspect]
     Active Substance: PREDNAZOLINE
     Dosage: 1 DF, 1X/DAY
     Route: 045
  288. PREDNAZOLINE [Suspect]
     Active Substance: PREDNAZOLINE
     Dosage: 1 DF, 1X/DAY
     Route: 045
  289. POLYETHYLENE GLYCOLS [Suspect]
     Active Substance: POLYETHYLENE GLYCOLS
     Dosage: 2 MG, QD
     Route: 048
  290. POLYETHYLENE GLYCOLS [Suspect]
     Active Substance: POLYETHYLENE GLYCOLS
     Dosage: 2 DF, QD
     Route: 048
  291. PROPAFENONE HYDROCHLORIDE [Suspect]
     Active Substance: PROPAFENONE HYDROCHLORIDE
     Dosage: 30 MG, TID
     Route: 048
  292. PROPAFENONE HYDROCHLORIDE [Suspect]
     Active Substance: PROPAFENONE HYDROCHLORIDE
     Dosage: 10 MG, 3X/DAY (ONCE EVERY 8HOURS)
     Route: 048
  293. PROPAFENONE HYDROCHLORIDE [Suspect]
     Active Substance: PROPAFENONE HYDROCHLORIDE
     Dosage: 10 MG, 3X/DAY (ONCE EVERY 8HOURS)
     Route: 048
  294. CELECOXIB [Suspect]
     Active Substance: CELECOXIB
     Dosage: UNK
  295. CLOBAZAM [Suspect]
     Active Substance: CLOBAZAM
     Dosage: 20 MG, QD
     Route: 048
  296. CLOBAZAM [Suspect]
     Active Substance: CLOBAZAM
     Dosage: 20 MG, QD
     Route: 048
  297. CLOBAZAM [Suspect]
     Active Substance: CLOBAZAM
     Dosage: 30 MG, Q8H
  298. CLOBAZAM [Suspect]
     Active Substance: CLOBAZAM
     Dosage: 10MG, 3X/DAY (ONCE EVERY 8 HOURS)
  299. CLOBAZAM [Suspect]
     Active Substance: CLOBAZAM
     Dosage: 20 MG, QD
     Route: 048
  300. CLOBAZAM [Suspect]
     Active Substance: CLOBAZAM
     Dosage: 90 MG, QD/30MG, TID
  301. CLOBAZAM [Suspect]
     Active Substance: CLOBAZAM
     Dosage: FREQUENCY TIME : 8 FREQUENCY TIME UNIT : HOURS
  302. CLOBAZAM [Suspect]
     Active Substance: CLOBAZAM
     Dosage: TID,10 MG, 3X/DAY (ONCE EVERY 8HOURS)
  303. CLOBAZAM [Suspect]
     Active Substance: CLOBAZAM
     Dosage: FREQUENCY TIME : 1 FREQUENCY TIME UNIT : DAYS
  304. CLOBAZAM [Suspect]
     Active Substance: CLOBAZAM
     Dosage: FREQUENCY TIME : 8 FREQUENCY TIME UNIT : HOURS
  305. CLOBAZAM [Suspect]
     Active Substance: CLOBAZAM
     Dosage: 4 MG, QD
  306. CLOBAZAM [Suspect]
     Active Substance: CLOBAZAM
     Dosage: 20 MG, QD
     Route: 048
  307. CLOBAZAM [Suspect]
     Active Substance: CLOBAZAM
     Dosage: 20 MG, QD
     Route: 048
  308. PEG 3350 [Suspect]
     Active Substance: POLYETHYLENE GLYCOL 3350
     Dosage: 2 DF, QD
     Route: 048
  309. PEG 3350 [Suspect]
     Active Substance: POLYETHYLENE GLYCOL 3350
     Dosage: 2 DF, QD
     Route: 048
  310. NITROGLYCERIN [Suspect]
     Active Substance: NITROGLYCERIN
     Dosage: 10 MG, 1X/DAY
     Route: 062
  311. NITROGLYCERIN [Suspect]
     Active Substance: NITROGLYCERIN
     Dosage: 10 MG, 1X/DAY
     Route: 062
  312. NITROGLYCERIN [Suspect]
     Active Substance: NITROGLYCERIN
     Dosage: 10 MG, 1X/DAY
     Route: 062
  313. NITROGLYCERIN [Suspect]
     Active Substance: NITROGLYCERIN
     Dosage: 10 MG, 1X/DAY
     Route: 062
  314. NITROGLYCERIN [Suspect]
     Active Substance: NITROGLYCERIN
     Dosage: 10 MG, 1X/DAY
     Route: 062
  315. NITROGLYCERIN [Suspect]
     Active Substance: NITROGLYCERIN
     Dosage: 10 MG, 1X/DAY
     Route: 062
  316. NITROGLYCERIN [Suspect]
     Active Substance: NITROGLYCERIN
     Dosage: 10 MG, 1X/DAY
     Route: 062
  317. NITROGLYCERIN [Suspect]
     Active Substance: NITROGLYCERIN
     Dosage: 10 MG, 1X/DAY
     Route: 062
  318. TRIHEXYPHENIDYL HYDROCHLORIDE [Suspect]
     Active Substance: TRIHEXYPHENIDYL HYDROCHLORIDE
     Dosage: 1MG, QD
     Route: 048
  319. TRIHEXYPHENIDYL HYDROCHLORIDE [Suspect]
     Active Substance: TRIHEXYPHENIDYL HYDROCHLORIDE
     Dosage: 1MG, QD
     Route: 048
  320. TRIHEXYPHENIDYL HYDROCHLORIDE [Suspect]
     Active Substance: TRIHEXYPHENIDYL HYDROCHLORIDE
     Dosage: 1MG, QD
  321. TRIHEXYPHENIDYL HYDROCHLORIDE [Suspect]
     Active Substance: TRIHEXYPHENIDYL HYDROCHLORIDE
     Dosage: 1MG, QD (20 MG QD)
  322. TRIHEXYPHENIDYL HYDROCHLORIDE [Suspect]
     Active Substance: TRIHEXYPHENIDYL HYDROCHLORIDE
     Dosage: 1MG, QD
     Route: 048
  323. TRIHEXYPHENIDYL HYDROCHLORIDE [Suspect]
     Active Substance: TRIHEXYPHENIDYL HYDROCHLORIDE
     Dosage: 1MG, QD
     Route: 048
  324. TRIHEXYPHENIDYL HYDROCHLORIDE [Suspect]
     Active Substance: TRIHEXYPHENIDYL HYDROCHLORIDE
     Dosage: 1MG, QD
  325. TRIHEXYPHENIDYL HYDROCHLORIDE [Suspect]
     Active Substance: TRIHEXYPHENIDYL HYDROCHLORIDE
     Dosage: 1MG, QD
  326. TRIHEXYPHENIDYL HYDROCHLORIDE [Suspect]
     Active Substance: TRIHEXYPHENIDYL HYDROCHLORIDE
     Dosage: 1MG, QD
  327. FUROSEMIDE [Suspect]
     Active Substance: FUROSEMIDE
     Dosage: 40 MG, QD
     Route: 048
  328. FUROSEMIDE [Suspect]
     Active Substance: FUROSEMIDE
     Dosage: 40 MG, QD
     Route: 048
  329. FUROSEMIDE [Suspect]
     Active Substance: FUROSEMIDE
     Dosage: 40 MG, QD
     Route: 048
  330. FUROSEMIDE [Suspect]
     Active Substance: FUROSEMIDE
     Dosage: 40 MG, QD
     Route: 048
  331. FUROSEMIDE [Suspect]
     Active Substance: FUROSEMIDE
     Dosage: 40 MG, QD
     Route: 048
  332. FUROSEMIDE [Suspect]
     Active Substance: FUROSEMIDE
     Dosage: 40 MG, QD
     Route: 048
  333. FUROSEMIDE [Suspect]
     Active Substance: FUROSEMIDE
     Dosage: 40 MG, QD
     Route: 048
  334. FUROSEMIDE [Suspect]
     Active Substance: FUROSEMIDE
     Dosage: 40 MG, QD
     Route: 048
  335. FUROSEMIDE [Suspect]
     Active Substance: FUROSEMIDE
     Dosage: 40 MG, QD
     Route: 048
  336. ESOMEPRAZOLE SODIUM [Suspect]
     Active Substance: ESOMEPRAZOLE SODIUM
     Dosage: 20 MG, QD
     Route: 048
  337. ESOMEPRAZOLE SODIUM [Suspect]
     Active Substance: ESOMEPRAZOLE SODIUM
     Dosage: 20 MG, QD
     Route: 048
  338. VERAPAMIL HCL [Suspect]
     Active Substance: VERAPAMIL HYDROCHLORIDE
     Dosage: 240 MG, QD
     Route: 048
  339. VERAPAMIL HCL [Suspect]
     Active Substance: VERAPAMIL HYDROCHLORIDE
     Dosage: UNK, FREQUENCY TIME : 1 FREQUENCY TIME UNIT : DAYS
     Route: 048
  340. VERAPAMIL HCL [Suspect]
     Active Substance: VERAPAMIL HYDROCHLORIDE
     Dosage: UNK, FREQUENCY TIME : 1 FREQUENCY TIME UNIT : DAYS
     Route: 048
  341. VERAPAMIL HCL [Suspect]
     Active Substance: VERAPAMIL HYDROCHLORIDE
     Dosage: 240 MG, QD
     Route: 048
  342. SIMVASTATIN [Suspect]
     Active Substance: SIMVASTATIN
     Dosage: 20 MG, QD
  343. SIMVASTATIN [Suspect]
     Active Substance: SIMVASTATIN
     Dosage: 20 MG, QD
  344. SIMVASTATIN [Suspect]
     Active Substance: SIMVASTATIN
     Dosage: UNK, FREQUENCY TIME : 1 FREQUENCY TIME UNIT : DAYS
  345. SIMVASTATIN [Suspect]
     Active Substance: SIMVASTATIN
     Dosage: 20 MG, QD
  346. SIMVASTATIN [Suspect]
     Active Substance: SIMVASTATIN
     Dosage: UNK, FREQUENCY TIME : 1 FREQUENCY TIME UNIT : DAYS
  347. SIMVASTATIN [Suspect]
     Active Substance: SIMVASTATIN
     Dosage: 20 MG, QD
  348. SIMVASTATIN [Suspect]
     Active Substance: SIMVASTATIN
     Dosage: 20 MG, QD
  349. ASPIRIN LYSINE [Suspect]
     Active Substance: ASPIRIN LYSINE
     Dosage: 20 MG, 1X/DAY
     Route: 048
  350. ASPIRIN LYSINE [Suspect]
     Active Substance: ASPIRIN LYSINE
     Dosage: 20 MG, 1X/DAY
     Route: 048
  351. NITROGLYCERIN [Suspect]
     Active Substance: NITROGLYCERIN
     Dosage: 10 MG, 1X/DAY, FREQUENCY TIME : 1 FREQUENCY TIME UNIT : DAYS
     Route: 062
  352. NITROGLYCERIN [Suspect]
     Active Substance: NITROGLYCERIN
     Dosage: UNK
     Route: 062
  353. NITROGLYCERIN [Suspect]
     Active Substance: NITROGLYCERIN
     Dosage: 10 MG, 1X/DAY
     Route: 062
  354. NITROGLYCERIN [Suspect]
     Active Substance: NITROGLYCERIN
     Dosage: 10 MG, 1X/DAY
     Route: 062
  355. NITROGLYCERIN [Suspect]
     Active Substance: NITROGLYCERIN
     Dosage: 10 MG, 1X/DAY
     Route: 062
  356. NITROGLYCERIN [Suspect]
     Active Substance: NITROGLYCERIN
     Dosage: 10 MG, 1X/DAY
     Route: 062
  357. NITROGLYCERIN [Suspect]
     Active Substance: NITROGLYCERIN
     Dosage: 10 MG, 1X/DAY
     Route: 062
  358. NITROGLYCERIN [Suspect]
     Active Substance: NITROGLYCERIN
     Dosage: 10 MG, 1X/DAY
     Route: 062
  359. NITROGLYCERIN [Suspect]
     Active Substance: NITROGLYCERIN
     Dosage: 10 MG, 1X/DAY
     Route: 062
  360. NITROGLYCERIN [Suspect]
     Active Substance: NITROGLYCERIN
     Dosage: 10 MG, 1X/DAY
     Route: 062
  361. NITROGLYCERIN [Suspect]
     Active Substance: NITROGLYCERIN
     Dosage: 10 MG, 1X/DAY
     Route: 062
  362. NITROGLYCERIN [Suspect]
     Active Substance: NITROGLYCERIN
     Dosage: 10 MG, 1X/DAY
     Route: 062
  363. NITROGLYCERIN [Suspect]
     Active Substance: NITROGLYCERIN
     Dosage: 10 MG, 1X/DAY
     Route: 062
  364. NITROGLYCERIN [Suspect]
     Active Substance: NITROGLYCERIN
     Dosage: UNK
     Route: 062
  365. NITROGLYCERIN [Suspect]
     Active Substance: NITROGLYCERIN
     Dosage: 10 MG, 1X/DAY
     Route: 062
  366. NITROGLYCERIN [Suspect]
     Active Substance: NITROGLYCERIN
     Dosage: UNK
     Route: 062
  367. NITROGLYCERIN [Suspect]
     Active Substance: NITROGLYCERIN
     Dosage: 10 MG, 1X/DAY
     Route: 062
  368. NITROGLYCERIN [Suspect]
     Active Substance: NITROGLYCERIN
     Dosage: 10 MG, 1X/DAY
     Route: 062
  369. NITROGLYCERIN [Suspect]
     Active Substance: NITROGLYCERIN
     Dosage: 10 MG, 1X/DAY
     Route: 062
  370. OXYGEN [Concomitant]
     Active Substance: OXYGEN
     Dosage: UNK
     Route: 065
  371. OXYGEN [Concomitant]
     Active Substance: OXYGEN
     Dosage: UNK
  372. OXYGEN [Concomitant]
     Active Substance: OXYGEN
     Dosage: UNK
  373. OXYGEN [Concomitant]
     Active Substance: OXYGEN
     Dosage: UNK
  374. OXYGEN [Concomitant]
     Active Substance: OXYGEN
     Dosage: UNK
  375. OXYGEN [Concomitant]
     Active Substance: OXYGEN
     Dosage: UNK
  376. OXYGEN [Concomitant]
     Active Substance: OXYGEN
     Dosage: UNK
     Route: 065
  377. OXYGEN [Concomitant]
     Active Substance: OXYGEN
     Dosage: UNK
     Route: 065
  378. OXYGEN [Concomitant]
     Active Substance: OXYGEN
     Dosage: UNK
     Route: 065
  379. OXYGEN [Concomitant]
     Active Substance: OXYGEN
     Dosage: UNK
     Route: 065
  380. OXYGEN [Concomitant]
     Active Substance: OXYGEN
     Dosage: UNK
     Route: 065
  381. OXYGEN [Concomitant]
     Active Substance: OXYGEN
     Dosage: UNK
     Route: 065
  382. OXYGEN [Concomitant]
     Active Substance: OXYGEN
     Dosage: UNK
     Route: 065
  383. OXYGEN [Concomitant]
     Active Substance: OXYGEN
     Dosage: UNK
     Route: 065
  384. OXYGEN [Concomitant]
     Active Substance: OXYGEN
     Dosage: UNK
     Route: 065
  385. OXYGEN [Concomitant]
     Active Substance: OXYGEN
     Dosage: UNK
     Route: 065
  386. OXYGEN [Concomitant]
     Active Substance: OXYGEN
     Dosage: UNK
     Route: 065
  387. OXYMETAZOLINE HYDROCHLORIDE\PREDNISOLONE SODIUM PHOSPHATE [Concomitant]
     Active Substance: OXYMETAZOLINE HYDROCHLORIDE\PREDNISOLONE SODIUM PHOSPHATE
     Dosage: 1 DF, QD
     Route: 045
  388. OXYMETAZOLINE HYDROCHLORIDE\PREDNISOLONE SODIUM PHOSPHATE [Concomitant]
     Active Substance: OXYMETAZOLINE HYDROCHLORIDE\PREDNISOLONE SODIUM PHOSPHATE
     Dosage: 1 DF, QD
     Route: 045
  389. OXYMETAZOLINE HYDROCHLORIDE\PREDNISOLONE SODIUM PHOSPHATE [Concomitant]
     Active Substance: OXYMETAZOLINE HYDROCHLORIDE\PREDNISOLONE SODIUM PHOSPHATE
     Dosage: 1 DF, QD
     Route: 045
  390. OXYMETAZOLINE HYDROCHLORIDE\PREDNISOLONE SODIUM PHOSPHATE [Concomitant]
     Active Substance: OXYMETAZOLINE HYDROCHLORIDE\PREDNISOLONE SODIUM PHOSPHATE
     Dosage: 1 DF, QD
     Route: 045
  391. OXYMETAZOLINE HYDROCHLORIDE\PREDNISOLONE SODIUM PHOSPHATE [Concomitant]
     Active Substance: OXYMETAZOLINE HYDROCHLORIDE\PREDNISOLONE SODIUM PHOSPHATE
     Dosage: 1 DF, QD
     Route: 045
  392. OXYMETAZOLINE HYDROCHLORIDE\PREDNISOLONE SODIUM PHOSPHATE [Concomitant]
     Active Substance: OXYMETAZOLINE HYDROCHLORIDE\PREDNISOLONE SODIUM PHOSPHATE
     Dosage: 1 DF, QD
     Route: 045
  393. OXYMETAZOLINE HYDROCHLORIDE\PREDNISOLONE SODIUM PHOSPHATE [Concomitant]
     Active Substance: OXYMETAZOLINE HYDROCHLORIDE\PREDNISOLONE SODIUM PHOSPHATE
     Dosage: 1 DF, QD
     Route: 045
  394. OXYMETAZOLINE HYDROCHLORIDE\PREDNISOLONE SODIUM PHOSPHATE [Concomitant]
     Active Substance: OXYMETAZOLINE HYDROCHLORIDE\PREDNISOLONE SODIUM PHOSPHATE
     Dosage: 1 DF, QD
     Route: 045
  395. OXYMETAZOLINE HYDROCHLORIDE\PREDNISOLONE SODIUM PHOSPHATE [Concomitant]
     Active Substance: OXYMETAZOLINE HYDROCHLORIDE\PREDNISOLONE SODIUM PHOSPHATE
     Dosage: 1 DF, QD
     Route: 045
  396. OXYMETAZOLINE HYDROCHLORIDE\PREDNISOLONE SODIUM PHOSPHATE [Concomitant]
     Active Substance: OXYMETAZOLINE HYDROCHLORIDE\PREDNISOLONE SODIUM PHOSPHATE
     Dosage: 1 DF, QD
     Route: 045
  397. OXYMETAZOLINE HYDROCHLORIDE\PREDNISOLONE SODIUM PHOSPHATE [Concomitant]
     Active Substance: OXYMETAZOLINE HYDROCHLORIDE\PREDNISOLONE SODIUM PHOSPHATE
     Dosage: 1 DF, QD
     Route: 045
  398. OXYMETAZOLINE HYDROCHLORIDE\PREDNISOLONE SODIUM PHOSPHATE [Concomitant]
     Active Substance: OXYMETAZOLINE HYDROCHLORIDE\PREDNISOLONE SODIUM PHOSPHATE
     Dosage: 1 DF, QD
     Route: 045
  399. OXYMETAZOLINE HYDROCHLORIDE/PREDNISOLONE SODIUM PHOSPHATE [Concomitant]
     Dosage: 1 DF, QD 1 DF, 1X/DAY/1 PUFF, QD
  400. OXYMETAZOLINE HYDROCHLORIDE/PREDNISOLONE SODIUM PHOSPHATE [Concomitant]
     Dosage: 1 DF, QD 1 DF, 1X/DAY/1 PUFF, QD

REACTIONS (11)
  - Cerebral artery thrombosis [Fatal]
  - Ischaemic stroke [Fatal]
  - Nausea [Fatal]
  - Areflexia [Fatal]
  - Facial paralysis [Fatal]
  - Hemiplegia [Fatal]
  - Disease recurrence [Fatal]
  - Respiratory distress [Fatal]
  - Respiratory failure [Fatal]
  - Brain scan abnormal [Fatal]
  - Cerebrovascular accident [Fatal]
